FAERS Safety Report 6610354-3 (Version None)
Quarter: 2010Q1

REPORT INFORMATION
  Report Type: 
  Country: None (occurrence: None)
  Receive Date: 20100302
  Receipt Date: 20100222
  Transmission Date: 20100710
  Serious: Yes (Hospitalization)
  Sender: FDA-Public Use
  Company Number: US-ASTRAZENECA-2010SE07735

PATIENT
  Age: 52 Year
  Sex: Male
  Weight: 110 kg

DRUGS (8)
  1. NEXIUM [Suspect]
     Indication: BARRETT'S OESOPHAGUS
     Route: 048
     Dates: start: 20040101
  2. SYMBALTA [Concomitant]
  3. ALLOPURINOL [Concomitant]
  4. CELEBREX [Concomitant]
  5. LISINOPRIL [Concomitant]
  6. SIMVASTATIN [Concomitant]
  7. IRON [Concomitant]
  8. SUCRALATE [Concomitant]

REACTIONS (2)
  - DRUG DOSE OMISSION [None]
  - LUNG DISORDER [None]
